FAERS Safety Report 4428499-5 (Version None)
Quarter: 2004Q3

REPORT INFORMATION
  Report Type: 
  Country: None (occurrence: None)
  Receive Date: 20040818
  Receipt Date: 20040813
  Transmission Date: 20050211
  Serious: Yes (Other)
  Sender: FDA-Public Use
  Company Number: PHBS2004JP10651

PATIENT
  Age: 55 Year
  Sex: Male

DRUGS (1)
  1. MIKELAN#OT (NVO) [Suspect]

REACTIONS (1)
  - ADAMS-STOKES SYNDROME [None]
